FAERS Safety Report 14754996 (Version 7)
Quarter: 2019Q4

REPORT INFORMATION
  Report Type: Spontaneous
  Country: US (occurrence: US)
  Receive Date: 20180413
  Receipt Date: 20191114
  Transmission Date: 20200122
  Serious: No
  Sender: FDA-Public Use
  Company Number: US-AMGEN-USASP2018047561

PATIENT
  Sex: Male
  Weight: 127 kg

DRUGS (1)
  1. ENBREL [Suspect]
     Active Substance: ETANERCEPT
     Indication: RHEUMATOID ARTHRITIS
     Dosage: UNK
     Route: 065
     Dates: start: 20080811, end: 20091120

REACTIONS (4)
  - Drug hypersensitivity [Unknown]
  - Alopecia [Unknown]
  - Pruritus [Unknown]
  - Hypoaesthesia [Unknown]
